FAERS Safety Report 5409450-8 (Version None)
Quarter: 2007Q3

REPORT INFORMATION
  Report Type: 
  Country: None (occurrence: None)
  Receive Date: 20070809
  Receipt Date: 20070730
  Transmission Date: 20080115
  Serious: Yes (Hospitalization)
  Sender: FDA-Public Use
  Company Number: CA-JNJFOC-20070800301

PATIENT
  Sex: Male
  Weight: 138 kg

DRUGS (2)
  1. REMICADE [Suspect]
     Indication: ANKYLOSING SPONDYLITIS
     Dosage: 4 DOSES
     Route: 042
  2. BENADRYL [Concomitant]
     Route: 042

REACTIONS (1)
  - PERICARDITIS [None]
